FAERS Safety Report 22341270 (Version 1)
Quarter: 2023Q2

REPORT INFORMATION
  Report Type: Spontaneous
  Country: SE (occurrence: None)
  Receive Date: 20230518
  Receipt Date: 20230518
  Transmission Date: 20230722
  Serious: Yes (Other)
  Sender: FDA-Public Use
  Company Number: 2023A110367

PATIENT
  Age: 80 Year
  Sex: Female

DRUGS (5)
  1. DAPAGLIFLOZIN [Suspect]
     Active Substance: DAPAGLIFLOZIN
     Indication: Diabetes mellitus
     Route: 048
     Dates: start: 20230407, end: 20230424
  2. ATORVASTATIN [Concomitant]
     Active Substance: ATORVASTATIN
  3. ATENOLOL [Concomitant]
     Active Substance: ATENOLOL
  4. EZETIMIBE ACCORD [Concomitant]
  5. ASPIRIN [Concomitant]
     Active Substance: ASPIRIN

REACTIONS (10)
  - Diplopia [Unknown]
  - Vision blurred [Unknown]
  - Confusional state [Unknown]
  - Sensory loss [Unknown]
  - Parosmia [Unknown]
  - Nausea [Unknown]
  - Taste disorder [Unknown]
  - Dizziness [Unknown]
  - Asthenia [Unknown]
  - Fatigue [Unknown]

NARRATIVE: CASE EVENT DATE: 20230401
